FAERS Safety Report 9963012 (Version 1)
Quarter: 2014Q1

REPORT INFORMATION
  Report Type: Spontaneous
  Country: US (occurrence: US)
  Receive Date: 20140305
  Receipt Date: 20140305
  Transmission Date: 20141002
  Serious: No
  Sender: FDA-Public Use
  Company Number: US-TARO-2013P1021774

PATIENT
  Sex: Female

DRUGS (3)
  1. NYSTATIN CREAM USP 100,000 UNITS/G [Suspect]
     Route: 061
     Dates: start: 2013
  2. THYROID MEDICATION [Concomitant]
  3. BLOOD PRESSURE SUPPLEMENTS [Concomitant]

REACTIONS (1)
  - Alopecia [Not Recovered/Not Resolved]
